FAERS Safety Report 13294440 (Version 1)
Quarter: 2017Q1

REPORT INFORMATION
  Report Type: Spontaneous
  Country: US (occurrence: US)
  Receive Date: 20170303
  Receipt Date: 20170303
  Transmission Date: 20170428
  Serious: Yes (Other)
  Sender: FDA-Public Use
  Company Number: US-BAYER-2017-037136

PATIENT
  Age: 41 Year
  Sex: Female

DRUGS (2)
  1. MIRENA [Suspect]
     Active Substance: LEVONORGESTREL
     Indication: CONTRACEPTION
     Dosage: 20 MCG/24HR, CONT
  2. MIRENA [Suspect]
     Active Substance: LEVONORGESTREL
     Indication: CONTRACEPTION
     Dosage: 20 MCG/24HR, CONT
     Route: 015
     Dates: start: 20150915, end: 20170217

REACTIONS (14)
  - Hemianaesthesia [None]
  - Peripheral swelling [None]
  - Hirsutism [None]
  - Vitamin B12 deficiency [None]
  - Ovarian cyst [None]
  - Abdominal pain [Not Recovered/Not Resolved]
  - Vitamin D deficiency [None]
  - Adrenal insufficiency [None]
  - Anxiety [None]
  - Arthralgia [None]
  - Muscle tightness [None]
  - Hair growth abnormal [None]
  - Cholecystectomy [None]
  - Myalgia [None]

NARRATIVE: CASE EVENT DATE: 201502
